FAERS Safety Report 5357849-0 (Version None)
Quarter: 2007Q2

REPORT INFORMATION
  Report Type: 
  Country: None (occurrence: None)
  Receive Date: 20070530
  Receipt Date: 20070116
  Transmission Date: 20071010
  Serious: Yes (Other)
  Sender: FDA-Public Use
  Company Number: US200701003749

PATIENT
  Sex: Male

DRUGS (1)
  1. ZYPREXA [Suspect]
     Dosage: 10 MG, 3/D, ORAL
     Route: 048
     Dates: start: 20070101, end: 20070101

REACTIONS (2)
  - BLOOD GLUCOSE INCREASED [None]
  - PRESCRIBED OVERDOSE [None]
